FAERS Safety Report 9511346 (Version 4)
Quarter: 2013Q4

REPORT INFORMATION
  Report Type: Report from Study
  Country: US (occurrence: US)
  Receive Date: 20130910
  Receipt Date: 20131014
  Transmission Date: 20140711
  Serious: Yes (Hospitalization, Other)
  Sender: FDA-Public Use
  Company Number: US-BAYER-2013-103689

PATIENT
  Age: 72 Year
  Sex: Female

DRUGS (1)
  1. STIVARGA [Suspect]
     Indication: COLON CANCER
     Dosage: 160 MG, QD
     Route: 048
     Dates: start: 20130802, end: 20130828

REACTIONS (14)
  - Pneumonia [None]
  - Sinus disorder [None]
  - Decreased appetite [None]
  - Asthenia [None]
  - Dyspnoea [None]
  - Fatigue [None]
  - Hypersomnia [None]
  - Mouth injury [None]
  - Nausea [None]
  - Neuropathy peripheral [None]
  - Chromaturia [None]
  - Dysphonia [None]
  - Rectal ulcer [None]
  - Vaginal ulceration [None]
